FAERS Safety Report 21156812 (Version 1)
Quarter: 2022Q3

REPORT INFORMATION
  Report Type: Spontaneous
  Country: GB (occurrence: GB)
  Receive Date: 20220801
  Receipt Date: 20220801
  Transmission Date: 20221026
  Serious: Yes (Other)
  Sender: FDA-Public Use
  Company Number: GB-PFIZER INC-PV202200030554

PATIENT
  Age: 53 Year
  Sex: Female

DRUGS (3)
  1. INFLIXIMAB [Suspect]
     Active Substance: INFLIXIMAB
     Indication: Behcet^s syndrome
     Dosage: EVERY 8 WEEKS(INFUSIONS)
  2. METHOTREXATE SODIUM [Suspect]
     Active Substance: METHOTREXATE SODIUM
     Indication: Behcet^s syndrome
     Dosage: 15 MG, WEEKLY
  3. DEFLAZACORT [Suspect]
     Active Substance: DEFLAZACORT
     Indication: Behcet^s syndrome
     Dosage: 6-18 MG ONCE A DAY

REACTIONS (4)
  - Off label use [Unknown]
  - Mycobacterium kansasii infection [Unknown]
  - Bursitis [Unknown]
  - Immunosuppression [Unknown]
